FAERS Safety Report 8043780-9 (Version None)
Quarter: 2012Q1

REPORT INFORMATION
  Report Type: 
  Country: None (occurrence: None)
  Receive Date: 20120113
  Receipt Date: 20120106
  Transmission Date: 20120608
  Serious: No
  Sender: FDA-Public Use
  Company Number: US-BIOGENIDEC-2011BI047111

PATIENT
  Age: 31 Year
  Sex: Male

DRUGS (4)
  1. RITUXAN [Concomitant]
     Indication: PRODUCT USED FOR UNKNOWN INDICATION
  2. CYTOXAN [Concomitant]
     Indication: PRODUCT USED FOR UNKNOWN INDICATION
  3. TYSABRI [Suspect]
     Indication: MULTIPLE SCLEROSIS
     Route: 042
     Dates: start: 20111205
  4. COPAXONE [Concomitant]
     Indication: PRODUCT USED FOR UNKNOWN INDICATION

REACTIONS (17)
  - DIARRHOEA [None]
  - MOBILITY DECREASED [None]
  - ABDOMINAL PAIN UPPER [None]
  - MUSCULAR WEAKNESS [None]
  - PAIN IN EXTREMITY [None]
  - PARAESTHESIA [None]
  - VOMITING [None]
  - SALIVARY HYPERSECRETION [None]
  - EYE PAIN [None]
  - DRUG INEFFECTIVE [None]
  - FEELING OF BODY TEMPERATURE CHANGE [None]
  - BURNING SENSATION [None]
  - ABDOMINAL DISCOMFORT [None]
  - INSOMNIA [None]
  - TREMOR [None]
  - MUSCLE SPASMS [None]
  - CHEST DISCOMFORT [None]
